FAERS Safety Report 5499768-5 (Version None)
Quarter: 2007Q4

REPORT INFORMATION
  Report Type: 
  Country: None (occurrence: None)
  Receive Date: 20071026
  Receipt Date: 20071016
  Transmission Date: 20080405
  Serious: Yes (Other)
  Sender: FDA-Public Use
  Company Number: US-PFIZER INC-2007056458

PATIENT
  Sex: Female
  Weight: 47.6 kg

DRUGS (9)
  1. CHANTIX [Suspect]
     Indication: SMOKING CESSATION THERAPY
     Dates: start: 20070601, end: 20070702
  2. CHANTIX [Suspect]
     Indication: NICOTINE DEPENDENCE
  3. ANTIDEPRESSANTS [Concomitant]
  4. CARDIAC THERAPY [Concomitant]
  5. NEURONTIN [Concomitant]
  6. PRAVACHOL [Concomitant]
  7. PAXIL [Concomitant]
  8. TRAZODONE HCL [Concomitant]
  9. ATENOLOL [Concomitant]

REACTIONS (4)
  - ASTHENIA [None]
  - DEPRESSION [None]
  - DIZZINESS [None]
  - NAUSEA [None]
